FAERS Safety Report 18407296 (Version 3)
Quarter: 2020Q4

REPORT INFORMATION
  Report Type: Spontaneous
  Country: HU (occurrence: HU)
  Receive Date: 20201020
  Receipt Date: 20201027
  Transmission Date: 20210114
  Serious: Yes (Disabling)
  Sender: FDA-Public Use
  Company Number: HU-PFIZER INC-2020402420

PATIENT
  Age: 68 Year
  Sex: Male

DRUGS (31)
  1. CONTROLOC [Suspect]
     Active Substance: PANTOPRAZOLE SODIUM
     Dosage: 1 DF (EVERY 12H), 2X/DAY
     Dates: start: 20200117, end: 20200129
  2. TRAMADOL [TRAMADOL HYDROCHLORIDE] [Suspect]
     Active Substance: TRAMADOL HYDROCHLORIDE
     Dosage: UNK
     Route: 065
     Dates: start: 20200120, end: 20200120
  3. FENTANYL. [Suspect]
     Active Substance: FENTANYL
     Dosage: 2 ML
     Dates: start: 20200117, end: 20200117
  4. ESMERON [Suspect]
     Active Substance: ROCURONIUM BROMIDE
     Dosage: UNK
     Route: 065
     Dates: start: 20200117, end: 20200117
  5. METRONIDAZOL [METRONIDAZOLE] [Suspect]
     Active Substance: METRONIDAZOLE
     Dosage: UNK
     Route: 065
     Dates: start: 20200117, end: 20200127
  6. CONTROLOC [Suspect]
     Active Substance: PANTOPRAZOLE SODIUM
     Dosage: UNK
     Route: 065
     Dates: start: 20200128, end: 20200129
  7. PARACETAMOL [Suspect]
     Active Substance: ACETAMINOPHEN
     Indication: PREMEDICATION
     Dosage: 1 GRAM
     Route: 065
     Dates: start: 20200117, end: 20200117
  8. CLEXANE [Suspect]
     Active Substance: ENOXAPARIN SODIUM
     Dosage: 0.4 MILLILITER
     Route: 065
     Dates: start: 202001, end: 20200129
  9. FENTANYL. [Suspect]
     Active Substance: FENTANYL
     Indication: EPIDURAL ANAESTHESIA
     Dosage: 2 MILLILITER
     Route: 065
     Dates: start: 20200117, end: 20200117
  10. FENTANYL. [Suspect]
     Active Substance: FENTANYL
     Dosage: UNK
     Route: 065
     Dates: start: 20200117, end: 20200117
  11. KLION [METRONIDAZOLE] [Suspect]
     Active Substance: METRONIDAZOLE
     Dosage: 500 MG, SINGLE
     Dates: start: 20200117, end: 20200117
  12. SUPRAX [Suspect]
     Active Substance: CEFIXIME
     Dosage: UNK
     Route: 065
     Dates: start: 20200122, end: 20200127
  13. BUPIVACAINE. [Suspect]
     Active Substance: BUPIVACAINE
     Indication: EPIDURAL ANAESTHESIA
     Dosage: UNK
     Route: 065
     Dates: start: 20200117, end: 20200117
  14. CLAFORAN [Suspect]
     Active Substance: CEFOTAXIME SODIUM
     Dosage: 1 G, SINGLE
     Dates: start: 20200117, end: 20200117
  15. BRIDION [Suspect]
     Active Substance: SUGAMMADEX
     Dosage: 50 MILLIGRAM
     Route: 065
     Dates: start: 20200117, end: 20200117
  16. ADRENALINE [EPINEPHRINE] [Suspect]
     Active Substance: EPINEPHRINE
     Indication: EPIDURAL ANAESTHESIA
     Dosage: UNK
     Route: 065
     Dates: start: 20200117, end: 20200117
  17. CONTROLOC [Suspect]
     Active Substance: PANTOPRAZOLE SODIUM
     Dosage: 1 DF (EVERY 12H), 2X/DAY
     Dates: start: 20200128, end: 20200129
  18. CLAFORAN [Suspect]
     Active Substance: CEFOTAXIME SODIUM
     Dosage: 1G (EVERY 12H)
     Route: 065
     Dates: start: 20200117, end: 20200121
  19. CLAFORAN [Suspect]
     Active Substance: CEFOTAXIME SODIUM
     Dosage: 1 GRAM, BID
     Route: 065
     Dates: start: 20200117, end: 20200117
  20. ALGOPYRIN [METAMIZOLE SODIUM] [Suspect]
     Active Substance: METAMIZOLE SODIUM
     Dosage: UNK
     Route: 065
     Dates: start: 20200120, end: 20200120
  21. SUFENTANIL [Suspect]
     Active Substance: SUFENTANIL
     Dosage: 40 MICROGRAM
     Route: 065
     Dates: start: 20200117, end: 20200117
  22. LIDOCAINE. [Suspect]
     Active Substance: LIDOCAINE
     Indication: EPIDURAL ANAESTHESIA
     Dosage: UNK
     Route: 065
     Dates: start: 20200117, end: 20200117
  23. PROPOFOL. [Suspect]
     Active Substance: PROPOFOL
     Dosage: 250 MILLIGRAM
     Route: 065
     Dates: start: 20200117, end: 20200117
  24. KLION [METRONIDAZOLE] [Suspect]
     Active Substance: METRONIDAZOLE
     Dosage: UNK
     Dates: start: 20200117, end: 20200127
  25. METRONIDAZOL [METRONIDAZOLE] [Suspect]
     Active Substance: METRONIDAZOLE
     Dosage: 500 MILLIGRAM
     Route: 065
     Dates: start: 20200117, end: 20200117
  26. CONTROLOC [Suspect]
     Active Substance: PANTOPRAZOLE SODIUM
     Dosage: UNK
     Route: 065
     Dates: start: 20200117
  27. ONDANSETRON [Suspect]
     Active Substance: ONDANSETRON
     Dosage: 4 MILLIGRAM
     Route: 065
     Dates: start: 20200117, end: 20200117
  28. NO-SPA [Suspect]
     Active Substance: DROTAVERINE HYDROCHLORIDE
     Dosage: UNK
     Route: 065
     Dates: start: 20200120, end: 20200120
  29. ALGOPYRIN [METAMIZOLE SODIUM] [Suspect]
     Active Substance: METAMIZOLE SODIUM
     Dosage: 2 G, SINGLE
     Route: 065
     Dates: start: 20200117, end: 20200117
  30. XANAX [Suspect]
     Active Substance: ALPRAZOLAM
     Indication: PREMEDICATION
     Dosage: 0.25 MILLIGRAM
     Route: 065
     Dates: start: 20200117, end: 20200117
  31. FENTANYL. [Suspect]
     Active Substance: FENTANYL
     Dosage: 2 MILLILITER
     Route: 065
     Dates: start: 20200119, end: 20200119

REACTIONS (1)
  - Deafness neurosensory [Not Recovered/Not Resolved]

NARRATIVE: CASE EVENT DATE: 20200124
